FAERS Safety Report 17045126 (Version 1)
Quarter: 2019Q4

REPORT INFORMATION
  Report Type: Other
  Country: US (occurrence: US)
  Receive Date: 20191118
  Receipt Date: 20191118
  Transmission Date: 20200122
  Serious: No
  Sender: FDA-Public Use
  Company Number: US-RISING PHARMACEUTICALS, INC.-2019RIS00417

PATIENT
  Age: 59 Year
  Sex: Female
  Weight: 53.52 kg

DRUGS (3)
  1. XANAX [Concomitant]
     Active Substance: ALPRAZOLAM
  2. MESALAMINE ENEMA [Concomitant]
     Dosage: ^IN THE MORNING^
  3. MESALAMINE. [Suspect]
     Active Substance: MESALAMINE
     Indication: COLITIS ULCERATIVE
     Dosage: 1000 MG, 1X/DAY EVERY MORNING
     Route: 054
     Dates: start: 20190703

REACTIONS (3)
  - Product use complaint [Not Recovered/Not Resolved]
  - Proctalgia [Not Recovered/Not Resolved]
  - Product substitution issue [Not Recovered/Not Resolved]

NARRATIVE: CASE EVENT DATE: 20190703
